FAERS Safety Report 19607986 (Version 1)
Quarter: 2021Q3

REPORT INFORMATION
  Report Type: Other
  Country: US (occurrence: US)
  Receive Date: 20210726
  Receipt Date: 20210726
  Transmission Date: 20211014
  Serious: Yes (Hospitalization, Other)
  Sender: FDA-Public Use
  Company Number: US-DEXPHARM-20211127

PATIENT
  Age: 38 Week
  Sex: Male

DRUGS (5)
  1. SERTRALINE [Suspect]
     Active Substance: SERTRALINE HYDROCHLORIDE
     Dosage: SERTRALINE (200?MG TABLET DAILY)
     Route: 064
  2. VENLAFAXINE [Interacting]
     Active Substance: VENLAFAXINE HYDROCHLORIDE
     Dosage: VENLAFAXINE (150?MG EXTENDED?RELEASE TABLET DAILY
     Route: 064
  3. BUSPIRONE [Interacting]
     Active Substance: BUSPIRONE HYDROCHLORIDE
     Dosage: BUSPIRONE (5?MG TABLETS THREE TIMES DAILY
     Route: 064
  4. TRAZODONE [Interacting]
     Active Substance: TRAZODONE HYDROCHLORIDE
     Dosage: TRAZODONE (150?MG EXTENDED?RELEASE TABLET DAILY)
     Route: 064
  5. NALOXONE [Concomitant]
     Active Substance: NALOXONE
     Dosage: RESUSCITATION WAS PERFORMED, AND A  DOSE OF NALOXONE WAS ADMINISTERED.

REACTIONS (9)
  - Livedo reticularis [Unknown]
  - Neonatal respiratory arrest [Recovered/Resolved]
  - Tremor [Unknown]
  - Small for dates baby [Unknown]
  - Poor feeding infant [Unknown]
  - Drug interaction [Unknown]
  - Hypertonia [Unknown]
  - Hypoglycaemia [Unknown]
  - Myoclonus [Unknown]
